FAERS Safety Report 5869347-6 (Version None)
Quarter: 2008Q3

REPORT INFORMATION
  Report Type: 
  Country: None (occurrence: None)
  Receive Date: 20080903
  Receipt Date: 20080827
  Transmission Date: 20090109
  Serious: Yes (Other)
  Sender: FDA-Public Use
  Company Number: AU-AMGEN-US280709

PATIENT
  Sex: Male

DRUGS (16)
  1. PANITUMUMAB [Suspect]
     Indication: COLORECTAL CANCER
     Route: 042
     Dates: start: 20080201
  2. CODEINE PHOSPHATE [Concomitant]
     Route: 048
     Dates: start: 20080519
  3. ACETAMINOPHEN W/ CODEINE [Concomitant]
     Route: 048
     Dates: start: 20080514
  4. IMODIUM [Concomitant]
     Route: 048
     Dates: start: 20080510
  5. MAGMIN [Concomitant]
     Route: 048
     Dates: start: 20080505
  6. DIFFLAM [Concomitant]
     Route: 048
     Dates: start: 20080317
  7. IRINOTECAN HCL [Concomitant]
     Route: 065
     Dates: start: 20080201, end: 20080505
  8. IRINOTECAN HCL [Concomitant]
     Route: 065
     Dates: start: 20080526, end: 20080625
  9. LEUCOVORIN CALCIUM [Concomitant]
     Route: 065
     Dates: start: 20080201, end: 20080303
  10. LEUCOVORIN CALCIUM [Concomitant]
     Route: 065
     Dates: start: 20080325, end: 20080625
  11. FLUOROURACIL [Concomitant]
     Route: 040
     Dates: start: 20080201, end: 20080303
  12. FLUOROURACIL [Concomitant]
     Route: 040
     Dates: start: 20080325, end: 20080505
  13. FLUOROURACIL [Concomitant]
     Route: 040
     Dates: start: 20080526, end: 20080625
  14. FLUOROURACIL [Concomitant]
     Route: 042
     Dates: start: 20080201, end: 20080303
  15. FLUOROURACIL [Concomitant]
     Route: 042
     Dates: start: 20080325, end: 20080505
  16. FLUOROURACIL [Concomitant]
     Route: 042
     Dates: start: 20080526, end: 20080625

REACTIONS (1)
  - PULMONARY EMBOLISM [None]
